FAERS Safety Report 5424591-7 (Version None)
Quarter: 2007Q3

REPORT INFORMATION
  Report Type: 
  Country: None (occurrence: None)
  Receive Date: 20070824
  Receipt Date: 20070821
  Transmission Date: 20080115
  Serious: Yes (Life-Threatening, Hospitalization)
  Sender: FDA-Public Use
  Company Number: GB-ABBOTT-07P-167-0378597-00

PATIENT
  Age: 41 Year
  Sex: Female
  Weight: 64.2 kg

DRUGS (3)
  1. HUMIRA [Suspect]
     Indication: PSORIATIC ARTHROPATHY
     Route: 050
     Dates: start: 20061201, end: 20070601
  2. INDOMETHACIN [Concomitant]
     Indication: PSORIATIC ARTHROPATHY
  3. PARACETAMOL [Concomitant]
     Indication: PAIN

REACTIONS (1)
  - ENDOMETRIAL CANCER STAGE II [None]
